FAERS Safety Report 5854252-1 (Version None)
Quarter: 2008Q3

REPORT INFORMATION
  Report Type: 
  Country: None (occurrence: None)
  Receive Date: 20080822
  Receipt Date: 20080820
  Transmission Date: 20090109
  Serious: Yes (Death, Other)
  Sender: FDA-Public Use
  Company Number: PHHY2008FR18746

PATIENT
  Sex: Female

DRUGS (1)
  1. HYDROCHLOROTHIAZIDE [Suspect]
     Dosage: UNK

REACTIONS (4)
  - ASPHYXIA [None]
  - BLOOD ALCOHOL [None]
  - DRUG LEVEL ABOVE THERAPEUTIC [None]
  - NERVOUSNESS [None]
